FAERS Safety Report 9178492 (Version 1)
Quarter: 2013Q1

REPORT INFORMATION
  Report Type: Spontaneous
  Country: ID (occurrence: ID)
  Receive Date: 20130321
  Receipt Date: 20130321
  Transmission Date: 20140127
  Serious: Yes (Other)
  Sender: FDA-Public Use
  Company Number: ID-ROCHE-1204108

PATIENT
  Sex: 0

DRUGS (2)
  1. BONVIVA [Suspect]
     Indication: OSTEOPOROSIS
     Route: 042
     Dates: start: 20130317
  2. MELOXICAM [Concomitant]
     Route: 048

REACTIONS (1)
  - Dyspnoea [Unknown]
